FAERS Safety Report 5492120-8 (Version None)
Quarter: 2007Q4

REPORT INFORMATION
  Report Type: 
  Country: None (occurrence: None)
  Receive Date: 20071018
  Receipt Date: 20071002
  Transmission Date: 20080405
  Serious: Yes (Other)
  Sender: FDA-Public Use
  Company Number: DSA_30709_2007

PATIENT
  Sex: Male
  Weight: 72.1219 kg

DRUGS (7)
  1. VASOTEC [Suspect]
     Indication: DRUG USE FOR UNKNOWN INDICATION
     Dosage: (DF)
     Dates: start: 20020910
  2. BEXTRA /01401501/ [Concomitant]
  3. LASIX [Concomitant]
  4. ROXICET [Concomitant]
  5. DIGOXIN [Concomitant]
  6. METOPROLOL [Concomitant]
  7. NORTRIPTYLINE HCL [Concomitant]

REACTIONS (7)
  - DECREASED APPETITE [None]
  - HEART RATE DECREASED [None]
  - HYPOTENSION [None]
  - MALAISE [None]
  - NAUSEA [None]
  - RENAL FAILURE [None]
  - WEIGHT DECREASED [None]
